FAERS Safety Report 7506249-3 (Version None)
Quarter: 2011Q2

REPORT INFORMATION
  Report Type: 
  Country: None (occurrence: None)
  Receive Date: 20110526
  Receipt Date: 20101022
  Transmission Date: 20111010
  Serious: Yes (Other)
  Sender: FDA-Public Use
  Company Number: PHBS2006JP09581

PATIENT
  Sex: Female
  Weight: 48 kg

DRUGS (7)
  1. DEXAMETHASONE [Concomitant]
     Dosage: 2 MG PER DAY
     Dates: start: 20040901
  2. AMLODIPINE [Concomitant]
     Dosage: 5 MG/D
     Route: 048
  3. AREDIA [Suspect]
     Indication: MULTIPLE MYELOMA
     Dosage: 45 MG PER MONTH
     Route: 042
     Dates: start: 20041201, end: 20060401
  4. DECADRON [Suspect]
     Indication: MULTIPLE MYELOMA
     Dosage: 2 MG/D
     Route: 048
     Dates: start: 20040901
  5. DIOVAN [Concomitant]
     Dosage: 160 MG/D
     Route: 048
  6. STEROIDS NOS [Concomitant]
  7. OMEPRAZOLE [Concomitant]
     Dosage: 20 MG/D
     Route: 048

REACTIONS (16)
  - VIITH NERVE PARALYSIS [None]
  - PURULENT DISCHARGE [None]
  - OSTEONECROSIS OF JAW [None]
  - SOFT TISSUE NECROSIS [None]
  - ANAEMIA [None]
  - LEUKOPENIA [None]
  - PAIN IN JAW [None]
  - TOOTH DISORDER [None]
  - TOOTH FRACTURE [None]
  - OSTEOMYELITIS [None]
  - BONE DISORDER [None]
  - HYPOAESTHESIA ORAL [None]
  - BONE SWELLING [None]
  - GINGIVAL ERYTHEMA [None]
  - C-REACTIVE PROTEIN INCREASED [None]
  - IMPAIRED HEALING [None]
